FAERS Safety Report 14505808 (Version 1)
Quarter: 2018Q1

REPORT INFORMATION
  Report Type: Spontaneous
  Country: US (occurrence: US)
  Receive Date: 20180208
  Receipt Date: 20180208
  Transmission Date: 20180509
  Serious: Yes (Hospitalization, Other)
  Sender: FDA-Public Use
  Company Number: US-BAYER-2018-024151

PATIENT
  Sex: Male

DRUGS (3)
  1. BENICAR [Suspect]
     Active Substance: OLMESARTAN MEDOXOMIL
     Indication: PRODUCT USED FOR UNKNOWN INDICATION
     Dosage: UNK
     Route: 065
  2. BENICAR [Suspect]
     Active Substance: OLMESARTAN MEDOXOMIL
     Indication: PRODUCT USED FOR UNKNOWN INDICATION
     Dosage: 40 MG, QD
     Route: 065
     Dates: start: 20090106, end: 20170814
  3. BAYER LOW DOSE [Suspect]
     Active Substance: ASPIRIN

REACTIONS (6)
  - Haemorrhoids [Unknown]
  - Diverticulum [Unknown]
  - Duodenal ulcer haemorrhage [Unknown]
  - Barrett^s oesophagus [Unknown]
  - Gastritis erosive [Recovering/Resolving]
  - Sprue-like enteropathy [Recovering/Resolving]

NARRATIVE: CASE EVENT DATE: 20151019
